FAERS Safety Report 18567949 (Version 1)
Quarter: 2020Q4

REPORT INFORMATION
  Report Type: Spontaneous
  Country: US (occurrence: US)
  Receive Date: 20201202
  Receipt Date: 20201202
  Transmission Date: 20210114
  Serious: Yes (Hospitalization, Other)
  Sender: FDA-Public Use
  Company Number: US-BION-009249

PATIENT
  Age: 15 Year
  Sex: Female

DRUGS (13)
  1. CLOBAZAM. [Concomitant]
     Active Substance: CLOBAZAM
     Indication: EPILEPSY
  2. FLUTICASONE. [Concomitant]
     Active Substance: FLUTICASONE
  3. ETHOSUXIMIDE. [Suspect]
     Active Substance: ETHOSUXIMIDE
     Indication: EPILEPSY
     Dosage: 10 MG/KG TWICE DAILY, INCREASED OVER THE NEXT TWO DAYS TO 30 MG/KG TWICE DAILY
  4. PHENOBARBITAL. [Concomitant]
     Active Substance: PHENOBARBITAL
     Indication: EPILEPSY
     Dosage: MULTIPLE BOLUSES
  5. LANSOPRAZOLE. [Concomitant]
     Active Substance: LANSOPRAZOLE
  6. LEVETIRACETAM. [Concomitant]
     Active Substance: LEVETIRACETAM
     Indication: EPILEPSY
     Dosage: MULTIPLE BOLUSES
     Route: 040
  7. RANITIDINE. [Concomitant]
     Active Substance: RANITIDINE
  8. CLONAZEPAM. [Concomitant]
     Active Substance: CLONAZEPAM
     Indication: EPILEPSY
  9. GENTAMICIN. [Concomitant]
     Active Substance: GENTAMICIN
  10. VALPROIC ACID. [Concomitant]
     Active Substance: VALPROIC ACID
     Indication: EPILEPSY
     Dosage: MULTIPLE BOLUSES
  11. KETAMINE [Concomitant]
     Active Substance: KETAMINE
     Indication: EPILEPSY
  12. MIDAZOLAM. [Concomitant]
     Active Substance: MIDAZOLAM
     Indication: EPILEPSY
     Dosage: CONTINUOUS MIDAZOLAM?MULTIPLE BOLUSES
  13. FOSPHENYTOIN [Concomitant]
     Active Substance: FOSPHENYTOIN
     Indication: EPILEPSY
     Dosage: MULTIPLE BOLUSES?INTRAVENOUS PHENYTOIN
     Route: 042

REACTIONS (2)
  - Oropharyngeal oedema [Recovered/Resolved]
  - Macroglossia [Recovered/Resolved]
